FAERS Safety Report 15499681 (Version 1)
Quarter: 2018Q4

REPORT INFORMATION
  Report Type: Spontaneous
  Country: AU (occurrence: AU)
  Receive Date: 20181015
  Receipt Date: 20181015
  Transmission Date: 20190205
  Serious: Yes (Hospitalization)
  Sender: FDA-Public Use
  Company Number: AU-MYLANLABS-2018M1075642

PATIENT
  Age: 61 Year
  Sex: Male

DRUGS (1)
  1. FLUOROURACIL. [Suspect]
     Active Substance: FLUOROURACIL
     Indication: RECTAL ADENOCARCINOMA
     Route: 050

REACTIONS (5)
  - Tumour perforation [Recovered/Resolved]
  - Groin abscess [Recovered/Resolved]
  - Gastrointestinal fistula [Recovered/Resolved]
  - Inguinal mass [Recovered/Resolved]
  - Sepsis [Unknown]
